FAERS Safety Report 24346925 (Version 1)
Quarter: 2024Q3

REPORT INFORMATION
  Report Type: Spontaneous
  Country: BE (occurrence: BE)
  Receive Date: 20240921
  Receipt Date: 20240921
  Transmission Date: 20241016
  Serious: Yes (Other)
  Sender: CELLTRION
  Company Number: None

PATIENT

DRUGS (1)
  1. RITUXIMAB [Suspect]
     Active Substance: RITUXIMAB
     Indication: Acute disseminated encephalomyelitis
     Dosage: THIS PATIENT HAS ALREADY RECEIVED 3 DOSES

REACTIONS (3)
  - Colorectal cancer metastatic [Not Recovered/Not Resolved]
  - Metastases to lung [Not Recovered/Not Resolved]
  - Intentional product use issue [Unknown]
